FAERS Safety Report 9993919 (Version 2)
Quarter: 2014Q1

REPORT INFORMATION
  Report Type: Spontaneous
  Country: NL (occurrence: NL)
  Receive Date: 20140310
  Receipt Date: 20140310
  Transmission Date: 20141002
  Serious: Yes (Death)
  Sender: FDA-Public Use
  Company Number: NL-ROCHE-1349483

PATIENT
  Age: 62 Year
  Sex: Female

DRUGS (3)
  1. BEVACIZUMAB [Suspect]
     Indication: OVARIAN CANCER RECURRENT
     Route: 042
  2. PACLITAXEL [Suspect]
     Indication: OVARIAN CANCER RECURRENT
     Route: 065
  3. CARBOPLATIN [Suspect]
     Indication: OVARIAN CANCER RECURRENT
     Route: 065

REACTIONS (3)
  - Haemorrhage [Unknown]
  - Septic shock [Fatal]
  - Intestinal perforation [Fatal]
